FAERS Safety Report 10354354 (Version 1)
Quarter: 2014Q3

REPORT INFORMATION
  Report Type: Spontaneous
  Country: FR (occurrence: None)
  Receive Date: 20140729
  Receipt Date: 20140729
  Transmission Date: 20150326
  Serious: Yes (Hospitalization)
  Sender: FDA-Public Use
  Company Number: AUR-APL-2014-07917

PATIENT
  Age: 2 Year
  Sex: Male

DRUGS (1)
  1. CEFPODOXIME (CEFPODOXIME) UNKNOWN [Suspect]
     Active Substance: CEFPODOXIME
     Indication: PRODUCT USED FOR UNKNOWN INDICATION
     Route: 048
     Dates: start: 20101214, end: 20101214

REACTIONS (5)
  - Eyelid oedema [None]
  - Heart rate increased [None]
  - Lip oedema [None]
  - Oral discomfort [None]
  - Tachypnoea [None]

NARRATIVE: CASE EVENT DATE: 20101214
